FAERS Safety Report 7031654-1 (Version None)
Quarter: 2010Q4

REPORT INFORMATION
  Report Type: 
  Country: None (occurrence: None)
  Receive Date: 20101006
  Receipt Date: 20101006
  Transmission Date: 20110411
  Serious: Yes (Hospitalization, Other)
  Sender: FDA-Public Use
  Company Number: None

PATIENT
  Age: 22 Year
  Sex: Female
  Weight: 47.6277 kg

DRUGS (1)
  1. NUVARING [Suspect]
     Indication: CONTRACEPTION
     Dosage: 0.15MG PER DAY INTRA-UTERI
     Route: 015
     Dates: start: 20070701, end: 20100501

REACTIONS (9)
  - ABDOMINAL PAIN [None]
  - DISTURBANCE IN ATTENTION [None]
  - DIZZINESS [None]
  - DRUG INEFFECTIVE [None]
  - MIGRAINE [None]
  - NO THERAPEUTIC RESPONSE [None]
  - RECTAL HAEMORRHAGE [None]
  - UNEMPLOYMENT [None]
  - WEIGHT INCREASED [None]
